FAERS Safety Report 19895985 (Version 4)
Quarter: 2022Q1

REPORT INFORMATION
  Report Type: Spontaneous
  Country: CA (occurrence: CA)
  Receive Date: 20210929
  Receipt Date: 20220310
  Transmission Date: 20220424
  Serious: Yes (Other)
  Sender: FDA-Public Use
  Company Number: CA-SA-2021SA318539

PATIENT
  Age: 58 Year
  Sex: Female

DRUGS (10)
  1. TRIAMCINOLONE ACETONIDE [Suspect]
     Active Substance: TRIAMCINOLONE ACETONIDE
     Indication: Tenosynovitis
     Dosage: UNK
     Route: 014
     Dates: start: 201712
  2. LIDOCAINE [Suspect]
     Active Substance: LIDOCAINE
     Indication: Tenosynovitis
     Dosage: UNK
     Dates: start: 201712
  3. METHOTREXATE [Suspect]
     Active Substance: METHOTREXATE
     Indication: Systemic scleroderma
     Dosage: 25 MG, QW
     Route: 048
  4. METHOTREXATE [Suspect]
     Active Substance: METHOTREXATE
     Indication: Immunosuppression
     Dosage: TREATMENT WITH METHOTREXATE WAS HELD AND THEN RESTARTED
  5. METHOTREXATE [Suspect]
     Active Substance: METHOTREXATE
     Indication: Dermatomyositis
  6. METHOTREXATE [Suspect]
     Active Substance: METHOTREXATE
     Indication: Immunosuppressant drug therapy
  7. PREDNISONE [Suspect]
     Active Substance: PREDNISONE
     Indication: Systemic scleroderma
     Dosage: 7.5 MG, QD
     Route: 065
  8. PREDNISONE [Suspect]
     Active Substance: PREDNISONE
     Indication: Immunosuppression
  9. PREDNISONE [Suspect]
     Active Substance: PREDNISONE
     Indication: Dermatomyositis
  10. PREDNISONE [Suspect]
     Active Substance: PREDNISONE
     Indication: Immunosuppressant drug therapy

REACTIONS (5)
  - Mycobacterium avium complex infection [Recovering/Resolving]
  - Atypical mycobacterial infection [Recovering/Resolving]
  - Condition aggravated [Unknown]
  - Myositis [Unknown]
  - Rebound effect [Unknown]

NARRATIVE: CASE EVENT DATE: 20180801
